FAERS Safety Report 13080163 (Version 3)
Quarter: 2017Q1

REPORT INFORMATION
  Report Type: Spontaneous
  Country: GB (occurrence: GB)
  Receive Date: 20170103
  Receipt Date: 20170112
  Transmission Date: 20170428
  Serious: Yes (Other)
  Sender: FDA-Public Use
  Company Number: GB-TEVA-724485ACC

PATIENT
  Age: 40 Year
  Sex: Female

DRUGS (4)
  1. ASPIRIN. [Interacting]
     Active Substance: ASPIRIN
     Dosage: UNKNOWN
     Route: 048
  2. FRAGMIN [Interacting]
     Active Substance: DALTEPARIN SODIUM
     Indication: PREGNANCY
     Dosage: UNKNOWN
  3. HUMIRA [Interacting]
     Active Substance: ADALIMUMAB
     Indication: PREGNANCY
     Dosage: UNKNOWN
     Route: 058
  4. PROGESTERONE. [Suspect]
     Active Substance: PROGESTERONE
     Indication: PREGNANCY
     Dosage: UNKNOWN
     Route: 065

REACTIONS (13)
  - Haemorrhage in pregnancy [Unknown]
  - Abortion [Unknown]
  - Vomiting in pregnancy [Unknown]
  - Exposure during pregnancy [Unknown]
  - Labelled drug-drug interaction medication error [Unknown]
  - Foetal death [Unknown]
  - Drug administration error [Unknown]
  - Abortion spontaneous [Unknown]
  - Vaginal haemorrhage [Unknown]
  - Fallopian tube disorder [Unknown]
  - Prolonged labour [Unknown]
  - Off label use [Unknown]
  - Surgical failure [Unknown]

NARRATIVE: CASE EVENT DATE: 2016
